FAERS Safety Report 14268909 (Version 2)
Quarter: 2018Q1

REPORT INFORMATION
  Report Type: Spontaneous
  Country: US (occurrence: US)
  Receive Date: 20171211
  Receipt Date: 20180323
  Transmission Date: 20180508
  Serious: Yes (Other)
  Sender: FDA-Public Use
  Company Number: US-BRISTOL-MYERS SQUIBB COMPANY-BMS-2017-108414

PATIENT
  Sex: Female

DRUGS (1)
  1. YERVOY [Suspect]
     Active Substance: IPILIMUMAB
     Indication: MALIGNANT MELANOMA
     Dosage: 1000 MG, UNK
     Route: 065
     Dates: end: 20170727

REACTIONS (5)
  - Dizziness [Unknown]
  - Asthenia [Unknown]
  - Hypothalamo-pituitary disorder [Unknown]
  - Vomiting [Unknown]
  - Blood pressure decreased [Unknown]
